FAERS Safety Report 20077124 (Version 2)
Quarter: 2021Q4

REPORT INFORMATION
  Report Type: Spontaneous
  Country: DE (occurrence: DE)
  Receive Date: 20211116
  Receipt Date: 20211122
  Transmission Date: 20220303
  Serious: Yes (Hospitalization, Other)
  Sender: FDA-Public Use
  Company Number: DE-CHIESI-2021CHF04112

PATIENT
  Sex: Male

DRUGS (8)
  1. ALBUTEROL [Suspect]
     Active Substance: ALBUTEROL
     Indication: Asthma
     Dosage: UNK
     Dates: start: 20210814, end: 20210814
  2. PANTOPRAZOLE [Suspect]
     Active Substance: PANTOPRAZOLE
     Indication: Product used for unknown indication
     Dosage: UNK
     Route: 048
     Dates: start: 20210814, end: 20210814
  3. THEOPHYLLINE [Suspect]
     Active Substance: THEOPHYLLINE
     Indication: Product used for unknown indication
     Dosage: UNK
     Route: 048
     Dates: start: 20210814, end: 20210814
  4. PIROXICAM [Suspect]
     Active Substance: PIROXICAM
     Indication: Asthma
     Dosage: UNK
     Route: 055
     Dates: start: 20210814, end: 20210814
  5. PIROXICAM [Suspect]
     Active Substance: PIROXICAM
     Dosage: 4 DOSAGE FORM, QD (2 DOSAGE FORM, BID)
     Route: 055
  6. PIROXICAM [Suspect]
     Active Substance: PIROXICAM
     Dosage: 4 DOSAGE FORM, QD (2 DOSAGE FORM, BID)
     Route: 055
  7. IBUPROFEN [Suspect]
     Active Substance: IBUPROFEN
     Indication: Product used for unknown indication
     Dosage: 8000 MILLIGRAM, QD
     Dates: start: 20210814, end: 20210814
  8. EBASTINE [Suspect]
     Active Substance: EBASTINE
     Indication: Allergy to animal
     Dosage: UNK
     Route: 048
     Dates: start: 20210814, end: 20210814

REACTIONS (14)
  - Blood glucose increased [Recovering/Resolving]
  - Electrocardiogram ST segment elevation [Recovering/Resolving]
  - Chills [Recovering/Resolving]
  - Somnolence [Recovering/Resolving]
  - Blood pressure decreased [Recovering/Resolving]
  - Drug abuse [Recovered/Resolved]
  - Suicide attempt [Unknown]
  - Discoloured vomit [Recovered/Resolved]
  - Heart rate increased [Recovered/Resolved]
  - Hypokalaemia [Recovered/Resolved]
  - Toxicity to various agents [Recovered/Resolved]
  - Infection [Recovered/Resolved]
  - Body temperature decreased [Recovered/Resolved]
  - Hyperglycaemia [Recovering/Resolving]

NARRATIVE: CASE EVENT DATE: 20210814
